FAERS Safety Report 5431265-5 (Version None)
Quarter: 2007Q3

REPORT INFORMATION
  Report Type: 
  Country: None (occurrence: None)
  Receive Date: 20070830
  Receipt Date: 20070819
  Transmission Date: 20080115
  Serious: Yes (Hospitalization)
  Sender: FDA-Public Use
  Company Number: CN-ROCHE-505921

PATIENT
  Age: 53 Year
  Sex: Male

DRUGS (1)
  1. XENICAL [Suspect]
     Dosage: SECOND INDICATION-  TO INCREASE INSULIN SENSITIVITY.
     Route: 048
     Dates: start: 20070201, end: 20070705

REACTIONS (1)
  - LACTESCENT SERUM [None]
